FAERS Safety Report 8851100 (Version 9)
Quarter: 2013Q4

REPORT INFORMATION
  Report Type: Report from Study
  Country: JP (occurrence: JP)
  Receive Date: 20121019
  Receipt Date: 20131226
  Transmission Date: 20140711
  Serious: Yes (Hospitalization, Other)
  Sender: FDA-Public Use
  Company Number: JP-VERTEX PHARMACEUTICAL INC.-2012-023164

PATIENT
  Age: 58 Year
  Sex: Male

DRUGS (78)
  1. VX-950 (TELAPREVIR) [Suspect]
     Indication: CHRONIC HEPATITIS C
     Dosage: 2250 MG, QD
     Route: 048
     Dates: start: 20120824, end: 20120902
  2. VX-950 (TELAPREVIR) [Suspect]
     Dosage: 1500 MG, QD
     Route: 048
     Dates: start: 20120903, end: 20121015
  3. PEGINTRON [Suspect]
     Indication: CHRONIC HEPATITIS C
     Dosage: 1.5 ?G/KG, QW
     Route: 058
     Dates: start: 20120824, end: 20120920
  4. PEGINTRON [Suspect]
     Dosage: 0.75 ?G/KG, QW
     Route: 058
     Dates: start: 20120921, end: 20120927
  5. PEGINTRON [Suspect]
     Dosage: 1.5 ?G/KG, QW
     Route: 058
     Dates: start: 20120928, end: 20121004
  6. PEGINTRON [Suspect]
     Dosage: 0.75 ?G/KG,QW
     Route: 058
     Dates: start: 20121005, end: 20121012
  7. REBETOL [Suspect]
     Indication: CHRONIC HEPATITIS C
     Dosage: 800 MG, QD
     Route: 048
     Dates: start: 20120824, end: 20121015
  8. ADRENAL HORMONE PREPARATIONS/ OTHER THERAPEUTIC PRODUCTS [Suspect]
  9. TANATRIL [Concomitant]
     Dosage: 5 MG, UNK
     Route: 048
     Dates: end: 20121018
  10. TANATRIL [Concomitant]
     Dosage: 10 MG, UNK
     Route: 048
     Dates: start: 20121019, end: 20121019
  11. TANATRIL [Concomitant]
     Dosage: 5 MG, UNK
     Route: 048
     Dates: start: 20121020
  12. MAINTATE [Concomitant]
     Dosage: 5 MG, QD
     Route: 048
     Dates: end: 20121018
  13. MAINTATE [Concomitant]
     Dosage: 10 MG, QD
     Route: 048
     Dates: start: 20121019, end: 20121019
  14. MAINTATE [Concomitant]
     Dosage: 5 MG, QD
     Route: 048
     Dates: start: 20121020
  15. TAKEPRON [Concomitant]
     Dosage: 15 MG, QD
     Route: 048
     Dates: end: 20121018
  16. TAKEPRON [Concomitant]
     Dosage: 15 MG, QD
     Route: 048
     Dates: start: 20130108
  17. CONSTAN [Concomitant]
     Dosage: 1.2 MG, QD
     Route: 048
     Dates: end: 20121017
  18. CONSTAN [Concomitant]
     Dosage: 2.4 MG, QD
     Route: 048
     Dates: start: 20121019, end: 20121019
  19. CONSTAN [Concomitant]
     Dosage: 1.6 MG, QD
     Route: 048
     Dates: start: 20121020, end: 20121020
  20. CONSTAN [Concomitant]
     Dosage: 1.2 MG, QD
     Route: 048
     Dates: start: 20121021, end: 20121022
  21. CONSTAN [Concomitant]
     Dosage: 1.2 MG, QD
     Route: 048
     Dates: start: 20130108
  22. ZOMIG [Concomitant]
     Dosage: 1 DF, PRN
     Route: 048
     Dates: end: 20121015
  23. ACTOS [Concomitant]
     Dosage: 15 MG, QD
     Route: 048
     Dates: end: 20121018
  24. ACTOS [Concomitant]
     Dosage: 15 MG, QD
     Route: 048
     Dates: start: 20121022
  25. LANTUS [Concomitant]
     Dosage: UNK, QD
     Route: 058
     Dates: start: 20121025
  26. ACTONEL [Concomitant]
     Dosage: 17.5 MG, QD
     Route: 048
     Dates: start: 20121101
  27. NOVOLIN R [Concomitant]
     Dosage: 4-6-6 U/ DAY
     Route: 058
     Dates: start: 20121025, end: 20130131
  28. MYSLEE [Concomitant]
     Dosage: 10 MG, QD
     Route: 048
     Dates: start: 20121015, end: 20121017
  29. SOLDEM 1 [Concomitant]
     Dosage: 500 ML
     Route: 042
     Dates: start: 20121015, end: 20121015
  30. ISOTONIC SODIUM CHLORIDE SOLUTION [Concomitant]
     Dosage: 100 ML, QD
     Route: 041
     Dates: start: 20121015, end: 20121018
  31. ISOTONIC SODIUM CHLORIDE SOLUTION [Concomitant]
     Dosage: 500 ML, QD
     Route: 041
     Dates: start: 20121015, end: 20121024
  32. ISOTONIC SODIUM CHLORIDE SOLUTION [Concomitant]
     Dosage: 120 ML, QD
     Route: 041
     Dates: start: 20121019, end: 20121019
  33. ISOTONIC SODIUM CHLORIDE SOLUTION [Concomitant]
     Dosage: 320 ML, QD
     Route: 041
     Dates: start: 20121020, end: 20121020
  34. ISOTONIC SODIUM CHLORIDE SOLUTION [Concomitant]
     Dosage: 200 ML, QD
     Route: 041
     Dates: start: 20121021, end: 20121025
  35. ISOTONIC SODIUM CHLORIDE SOLUTION [Concomitant]
     Dosage: 1000 ML, QD
     Route: 042
     Dates: start: 20121025, end: 20121025
  36. ISOTONIC SODIUM CHLORIDE SOLUTION [Concomitant]
     Dosage: 500 ML, QD
     Route: 042
     Dates: start: 20121026, end: 20121201
  37. ISOTONIC SODIUM CHLORIDE SOLUTION [Concomitant]
     Dosage: 200 ML, QD
     Route: 041
     Dates: start: 20121102, end: 20121107
  38. ISOTONIC SODIUM CHLORIDE SOLUTION [Concomitant]
     Dosage: 200 ML, QD
     Route: 041
     Dates: start: 20121109, end: 20121122
  39. GASTER [Concomitant]
     Dosage: 1 DF, QD
     Route: 041
     Dates: start: 20121015, end: 20121015
  40. GASTER [Concomitant]
     Dosage: 0.25 DF, QD
     Route: 041
     Dates: start: 20121016, end: 20121016
  41. GASTER [Concomitant]
     Dosage: 0.5 DF, QD
     Route: 041
     Dates: start: 20121017, end: 20121017
  42. GASTER [Concomitant]
     Dosage: 1 DF, QD
     Route: 041
     Dates: start: 20121018, end: 20121020
  43. BFLUID [Concomitant]
     Dosage: 1 DF, QD
     Route: 041
     Dates: start: 20121015, end: 20121015
  44. NOVO HEPARIN [Concomitant]
     Dosage: 1 DF, QD
     Route: 042
     Dates: start: 20121015, end: 20121015
  45. NOVO HEPARIN [Concomitant]
     Dosage: 1 DF, QD
     Route: 042
     Dates: start: 20121017, end: 20121019
  46. NOVO HEPARIN [Concomitant]
     Dosage: 2 DF, QD
     Route: 042
     Dates: start: 20121020, end: 20121021
  47. NOVO HEPARIN [Concomitant]
     Dosage: 1 DF, QD
     Route: 042
     Dates: start: 20121022, end: 20121022
  48. NOVO HEPARIN [Concomitant]
     Dosage: 3 DF, QD
     Route: 042
     Dates: start: 20121023, end: 20121023
  49. NOVO HEPARIN [Concomitant]
     Dosage: 1 DF, QD
     Route: 042
     Dates: start: 20121101, end: 20121101
  50. NOVO HEPARIN [Concomitant]
     Dosage: 0.5 DF, QD
     Route: 042
     Dates: start: 20121102, end: 20121103
  51. NOVO HEPARIN [Concomitant]
     Dosage: 1 DF, QD
     Route: 042
     Dates: start: 20121104, end: 20121107
  52. NOVO HEPARIN [Concomitant]
     Dosage: 2 DF, QD
     Route: 042
     Dates: start: 20121108, end: 20121108
  53. NOVO HEPARIN [Concomitant]
     Dosage: 1 DF, QD
     Route: 042
     Dates: start: 20121123, end: 20121201
  54. GLUCOSE [Concomitant]
     Dosage: 500 ML, QD
     Route: 042
     Dates: start: 20121016, end: 20121016
  55. POTACOL R [Concomitant]
     Dosage: 1000 ML, QD
     Route: 042
     Dates: start: 20121016, end: 20121016
  56. POTACOL R [Concomitant]
     Dosage: 500 ML, QD
     Route: 042
     Dates: start: 20121017, end: 20121018
  57. SOLDEM 3A [Concomitant]
     Dosage: 500 ML, QD
     Route: 042
     Dates: start: 20121016, end: 20121016
  58. SOLDEM 3A [Concomitant]
     Dosage: 1000 ML, QD
     Route: 042
     Dates: start: 20121017, end: 20121025
  59. HEPARIN SODIUM [Concomitant]
     Dosage: 0.5 DF, QD
     Route: 042
     Dates: start: 20121016, end: 20121016
  60. HEPARIN SODIUM [Concomitant]
     Dosage: 1 DF, QD
     Route: 042
     Dates: start: 20121024, end: 20121031
  61. HEPARIN SODIUM [Concomitant]
     Dosage: 1 DF, QD
     Route: 042
     Dates: start: 20121109, end: 20121122
  62. PURSENNIDE [Concomitant]
     Dosage: 24 MG, QD
     Route: 048
     Dates: start: 20121020, end: 20121020
  63. GASTER D [Concomitant]
     Dosage: 20 MG, QD
     Route: 048
     Dates: start: 20121021, end: 20130107
  64. SOLANAX [Concomitant]
     Dosage: 0.4 MG, QD
     Route: 048
     Dates: start: 20121022, end: 20121022
  65. SOLANAX [Concomitant]
     Dosage: 1.2 MG, QD
     Route: 048
     Dates: start: 20121023, end: 20130107
  66. LOXONIN [Concomitant]
     Dosage: 60 MG, QD
     Route: 048
     Dates: start: 20121031, end: 20121031
  67. LOXONIN [Concomitant]
     Dosage: 300 MG, QD
     Route: 048
     Dates: start: 20121101, end: 20121101
  68. LOXONIN [Concomitant]
     Dosage: 240 MG, QD
     Route: 048
     Dates: start: 20121102, end: 20121102
  69. LOXONIN [Concomitant]
     Dosage: 180 MG, QD
     Route: 048
     Dates: start: 20121103, end: 20121205
  70. LOXONIN [Concomitant]
     Dosage: 180 MG, QD
     Route: 048
     Dates: start: 20121207, end: 20121224
  71. MUCOSTA [Concomitant]
     Dosage: 100 MG, QD
     Route: 048
     Dates: start: 20121031, end: 20121031
  72. MUCOSTA [Concomitant]
     Dosage: 500 MG, QD
     Route: 048
     Dates: start: 20121101, end: 20121101
  73. MUCOSTA [Concomitant]
     Dosage: 400 MG, QD
     Route: 048
     Dates: start: 20121102, end: 20121102
  74. MUCOSTA [Concomitant]
     Dosage: 300 MG, QD
     Route: 048
     Dates: start: 20121103, end: 20121205
  75. MUCOSTA [Concomitant]
     Dosage: 300 MG, QD
     Route: 048
     Dates: start: 20121207, end: 20121224
  76. MUCOSTA [Concomitant]
     Dosage: UNK
  77. BAKTAR [Concomitant]
     Dosage: 0.5 MG, QD
     Route: 048
     Dates: start: 20121101, end: 20130107
  78. MAGMITT [Concomitant]
     Dosage: 990 MG, QD
     Route: 048
     Dates: start: 20121103, end: 20121119

REACTIONS (5)
  - White blood cell count decreased [Recovered/Resolved]
  - Renal failure acute [Recovered/Resolved]
  - Stevens-Johnson syndrome [Recovered/Resolved]
  - Haemoglobin decreased [Recovered/Resolved]
  - Intervertebral discitis [Recovered/Resolved]
